FAERS Safety Report 23888407 (Version 1)
Quarter: 2024Q2

REPORT INFORMATION
  Report Type: Other
  Country: MX (occurrence: None)
  Receive Date: 20240523
  Receipt Date: 20240523
  Transmission Date: 20240716
  Serious: No
  Sender: FDA-Public Use
  Company Number: MX-ROCHE-3567135

PATIENT
  Sex: Male

DRUGS (8)
  1. OCREVUS [Suspect]
     Active Substance: OCRELIZUMAB
     Indication: Multiple sclerosis
     Route: 042
     Dates: start: 20190818
  2. ESOMEPRAZOLE [Concomitant]
     Active Substance: ESOMEPRAZOLE
     Dosage: TAKE 1 TABLET ORALLY EVERY 8 HOURS FOR 3 MONTHS
     Route: 048
  3. TREMEPEN [Concomitant]
     Dosage: TAKE 1 CAPSULE ORALLY EVERY 12 HOURS FOR TWO MONTHS, GABAPENTIN/TRAMADOL CAPSULE 300MQ/25MG
     Route: 048
  4. TRAMADOL HYDROCHLORIDE [Concomitant]
     Active Substance: TRAMADOL HYDROCHLORIDE
     Dosage: TAKE 2 DROPS BY MOUTH EVERY 8 HOURS FOR 1 MONTH
     Route: 048
  5. DULOXETINE [Concomitant]
     Active Substance: DULOXETINE
     Dosage: TAKE ONE CAPSULE ORALLY EVERY 24 HOURS FOR THREE MONTHS,CAPSULES 60 MG
     Route: 048
  6. STADIUM (MEXICO) [Concomitant]
     Dosage: TAKE ONE TABLET BY MOUTH EVERY 24 HOURS FOR 3 MONTHS, 7) DEXKETOPROFEN TABLETS 25 MG
     Route: 048
  7. MOTRIN [Concomitant]
     Active Substance: IBUPROFEN
     Dosage: ONE EVERY 12 HOURS FOR THREE MONTHS
  8. TIZANIDINE [Concomitant]
     Active Substance: TIZANIDINE
     Dosage: TAKE 1 EVERY 8 HOURS ORALLY FOR SIX MONTHS
     Route: 048

REACTIONS (8)
  - Bone deformity [Unknown]
  - Demyelination [Unknown]
  - Coordination abnormal [Unknown]
  - Central pain syndrome [Unknown]
  - Gait disturbance [Unknown]
  - Asthenia [Unknown]
  - Muscle atrophy [Unknown]
  - Hypertonia [Unknown]
